FAERS Safety Report 20822887 (Version 1)
Quarter: 2022Q2

REPORT INFORMATION
  Report Type: Spontaneous
  Country: FR (occurrence: FR)
  Receive Date: 20220512
  Receipt Date: 20220512
  Transmission Date: 20220721
  Serious: Yes (Death)
  Sender: FDA-Public Use
  Company Number: FR-BIOGEN-2022BI01121154

PATIENT
  Age: 0 Day
  Sex: Female
  Weight: 2.85 kg

DRUGS (5)
  1. TYSABRI [Suspect]
     Active Substance: NATALIZUMAB
     Indication: Multiple sclerosis
     Route: 064
     Dates: start: 20210318, end: 20210708
  2. TAMSULOSIN HYDROCHLORIDE [Suspect]
     Active Substance: TAMSULOSIN HYDROCHLORIDE
     Indication: Urinary incontinence
     Route: 064
     Dates: start: 20201207, end: 20201225
  3. TOVIAZ [Suspect]
     Active Substance: FESOTERODINE FUMARATE
     Indication: Urinary incontinence
     Route: 064
     Dates: start: 20201207, end: 20201225
  4. METHYLPREDNISOLONE HEMISUCCINATE [Suspect]
     Active Substance: METHYLPREDNISOLONE HEMISUCCINATE
     Indication: Multiple sclerosis
     Dosage: 1G PER DAY DURING 3 DAYS
     Route: 064
     Dates: start: 202102, end: 202102
  5. GILENYA [Suspect]
     Active Substance: FINGOLIMOD HYDROCHLORIDE
     Indication: Multiple sclerosis
     Route: 064
     Dates: start: 20201207, end: 20201225

REACTIONS (3)
  - Pulmonary arterial hypertension [Fatal]
  - Patent ductus arteriosus [Fatal]
  - Atrial septal defect [Fatal]

NARRATIVE: CASE EVENT DATE: 20210827
